FAERS Safety Report 5419142-7 (Version None)
Quarter: 2007Q3

REPORT INFORMATION
  Report Type: 
  Country: None (occurrence: None)
  Receive Date: 20070820
  Receipt Date: 20070810
  Transmission Date: 20080115
  Serious: Yes (Other)
  Sender: FDA-Public Use
  Company Number: PHBS2007KR13387

PATIENT
  Age: 8 Year
  Sex: Female

DRUGS (1)
  1. EXJADE [Suspect]
     Dosage: UNK, UNK
     Route: 048

REACTIONS (3)
  - BLOOD URINE PRESENT [None]
  - HAEMATURIA [None]
  - HAEMORRHAGE URINARY TRACT [None]
